FAERS Safety Report 5089867-4 (Version None)
Quarter: 2006Q3

REPORT INFORMATION
  Report Type: 
  Country: None (occurrence: None)
  Receive Date: 20060727
  Receipt Date: 20060516
  Transmission Date: 20061208
  Serious: Yes (Other)
  Sender: FDA-Public Use
  Company Number: 2006065351

PATIENT
  Age: 67 Year
  Sex: Male
  Weight: 131.5431 kg

DRUGS (9)
  1. LYRICA [Suspect]
     Indication: DIABETIC NEUROPATHY
     Dosage: 300 MG (150 MG 2 IN 1 D, UNKNOWN)
     Route: 065
     Dates: start: 20060101
  2. GLUCOPHAGE [Concomitant]
  3. INSULIN HUMULIN 70/30 (INSULIN HUMAN, INSULIN HUMAN INJECTION, ISOPHAN [Concomitant]
  4. LIPITOR [Concomitant]
  5. K-DUR 10 [Concomitant]
  6. LASIX [Concomitant]
  7. HYDROCHLOROTHIAZIDE [Concomitant]
  8. VASOTEC [Concomitant]
  9. VICODIN [Concomitant]

REACTIONS (5)
  - DISORIENTATION [None]
  - DIZZINESS [None]
  - MUSCULAR WEAKNESS [None]
  - OEDEMA PERIPHERAL [None]
  - SOMNOLENCE [None]
